FAERS Safety Report 9265268 (Version 1)
Quarter: 2013Q2

REPORT INFORMATION
  Report Type: Spontaneous
  Country: CL (occurrence: CL)
  Receive Date: 20130501
  Receipt Date: 20130501
  Transmission Date: 20140414
  Serious: Yes (Hospitalization, Other)
  Sender: FDA-Public Use
  Company Number: PHHY2013CL029397

PATIENT
  Age: 3 Year
  Sex: Male

DRUGS (2)
  1. SIMULECT [Suspect]
     Indication: RENAL TRANSPLANT
     Dosage: UNK UKN, UNK
     Dates: start: 20130320
  2. METHYLPREDNISOLONE [Concomitant]

REACTIONS (3)
  - Anaphylactic shock [Recovered/Resolved]
  - Hypotension [Unknown]
  - Rubber sensitivity [Unknown]
